FAERS Safety Report 5055458-4 (Version None)
Quarter: 2006Q3

REPORT INFORMATION
  Report Type: 
  Country: None (occurrence: None)
  Receive Date: 20060719
  Receipt Date: 20060711
  Transmission Date: 20061208
  Serious: Yes (Hospitalization)
  Sender: FDA-Public Use
  Company Number: JP-ABBOTT-06P-087-0337982-00

PATIENT
  Sex: Female

DRUGS (8)
  1. KLARICID [Suspect]
     Indication: INFECTION
     Route: 048
     Dates: start: 20060620, end: 20060620
  2. FUDOSTEINE [Concomitant]
     Indication: DRUG USE FOR UNKNOWN INDICATION
     Route: 048
     Dates: start: 20060620, end: 20060622
  3. HERBAL MEDICINE [Concomitant]
     Indication: DRUG USE FOR UNKNOWN INDICATION
     Route: 048
     Dates: start: 20060620, end: 20060622
  4. TEPRENONE [Concomitant]
     Indication: DRUG USE FOR UNKNOWN INDICATION
     Route: 048
     Dates: start: 20060620, end: 20060622
  5. LEVOFLOXACIN [Concomitant]
     Indication: INFECTION
     Route: 048
     Dates: start: 20060522
  6. LEVOFLOXACIN [Concomitant]
     Indication: BRONCHIECTASIS
     Route: 048
     Dates: start: 20060622
  7. MOXIFLOXACIN HYDROCHLORIDE [Concomitant]
     Indication: PYREXIA
     Route: 048
     Dates: start: 20060614
  8. ISEPAMICIN SULFATE [Concomitant]
     Indication: PYREXIA
     Dates: start: 20060614

REACTIONS (3)
  - ANOREXIA [None]
  - BACTERIAL INFECTION [None]
  - PYREXIA [None]
